FAERS Safety Report 7442388-3 (Version None)
Quarter: 2011Q2

REPORT INFORMATION
  Report Type: 
  Country: None (occurrence: None)
  Receive Date: 20110425
  Receipt Date: 20110425
  Transmission Date: 20111010
  Serious: Yes (Life-Threatening)
  Sender: FDA-Public Use
  Company Number: None

PATIENT
  Age: 35 Year
  Sex: Female
  Weight: 58.0604 kg

DRUGS (1)
  1. IBUPROFEN [Suspect]
     Indication: DYSMENORRHOEA
     Dosage: 400 MG -2 CAPLETS- 4-6 HOURS PO
     Route: 048
     Dates: start: 20110406, end: 20110406

REACTIONS (6)
  - HYPERSENSITIVITY [None]
  - URTICARIA [None]
  - FATIGUE [None]
  - PYREXIA [None]
  - PRURITUS [None]
  - DYSPNOEA [None]
